FAERS Safety Report 16427576 (Version 1)
Quarter: 2019Q2

REPORT INFORMATION
  Report Type: Spontaneous
  Country: US (occurrence: US)
  Receive Date: 20190613
  Receipt Date: 20190613
  Transmission Date: 20190711
  Serious: Yes (Hospitalization)
  Sender: FDA-Public Use
  Company Number: US-JNJFOC-20190610380

PATIENT
  Age: 90 Year
  Sex: Female
  Weight: 61.24 kg

DRUGS (5)
  1. TYLENOL [Interacting]
     Active Substance: ACETAMINOPHEN
     Route: 048
  2. TYLENOL [Interacting]
     Active Substance: ACETAMINOPHEN
     Indication: MYALGIA
     Dosage: 650MG/
     Route: 048
     Dates: start: 201902
  3. XARELTO [Suspect]
     Active Substance: RIVAROXABAN
     Indication: ATRIAL FIBRILLATION
     Route: 048
     Dates: start: 2013
  4. LASIX [Interacting]
     Active Substance: FUROSEMIDE
     Indication: GENERALISED OEDEMA
     Route: 065
  5. XARELTO [Suspect]
     Active Substance: RIVAROXABAN
     Indication: CEREBROVASCULAR ACCIDENT PROPHYLAXIS
     Route: 048
     Dates: start: 2013

REACTIONS (4)
  - Drug interaction [Unknown]
  - Myalgia [Unknown]
  - Cardiac failure [Unknown]
  - Fall [Unknown]

NARRATIVE: CASE EVENT DATE: 201902
